FAERS Safety Report 19603303 (Version 1)
Quarter: 2021Q3

REPORT INFORMATION
  Report Type: Spontaneous
  Country: GB (occurrence: GB)
  Receive Date: 20210723
  Receipt Date: 20210723
  Transmission Date: 20211014
  Serious: Yes (Other)
  Sender: FDA-Public Use
  Company Number: GB-TEVA-2021-GB-1934591

PATIENT
  Sex: Female

DRUGS (1)
  1. RAMIPRIL. [Suspect]
     Active Substance: RAMIPRIL
     Dosage: 2.5MG/5ML
     Route: 065

REACTIONS (2)
  - Wrist fracture [Unknown]
  - Product closure removal difficult [Unknown]
